FAERS Safety Report 17336332 (Version 2)
Quarter: 2020Q1

REPORT INFORMATION
  Report Type: Spontaneous
  Country: FR (occurrence: FR)
  Receive Date: 20200128
  Receipt Date: 20200317
  Transmission Date: 20200409
  Serious: Yes (Other)
  Sender: FDA-Public Use
  Company Number: FR-TEVA-2020-FR-1176562

PATIENT
  Age: 26 Year
  Sex: Male
  Weight: 109 kg

DRUGS (3)
  1. RISPERIDONE TEVA SANTE 1 MG [Suspect]
     Active Substance: RISPERIDONE
     Indication: MENTAL DISORDER
     Route: 048
     Dates: start: 20170224
  2. ALPRAZOLAM 0.5 MG [Concomitant]
     Active Substance: ALPRAZOLAM
     Indication: ANXIETY
     Dosage: 2 DOSAGE FORMS DAILY; 0.5 DF IN THE MORNING AND AT NOON AND 1 DF IN THE EVENING
     Route: 048
     Dates: start: 20150923
  3. EFFEXOR LP 75 MG (VENLAFAXINE) [Concomitant]
     Active Substance: VENLAFAXINE HYDROCHLORIDE
     Indication: DEPRESSION
     Dosage: 1 DOSAGE FORMS DAILY;
     Route: 048
     Dates: start: 20150923

REACTIONS (1)
  - Type 2 diabetes mellitus [Unknown]

NARRATIVE: CASE EVENT DATE: 20170324
